FAERS Safety Report 6369846-7 (Version None)
Quarter: 2009Q3

REPORT INFORMATION
  Report Type: 
  Country: None (occurrence: None)
  Receive Date: 20090923
  Receipt Date: 20070516
  Transmission Date: 20100115
  Serious: Yes (Other)
  Sender: FDA-Public Use
  Company Number: US-ASTRAZENECA-2006UW12194

PATIENT
  Age: 49 Year
  Sex: Male
  Weight: 80.7 kg

DRUGS (9)
  1. SEROQUEL [Suspect]
     Indication: SCHIZOPHRENIA
     Route: 048
     Dates: start: 20060101
  2. SEROQUEL [Suspect]
     Indication: INSOMNIA
     Route: 048
     Dates: start: 20060101
  3. SEROQUEL [Suspect]
     Dosage: 25-200 MG
     Route: 048
     Dates: start: 20060120
  4. SEROQUEL [Suspect]
     Dosage: 25-200 MG
     Route: 048
     Dates: start: 20060120
  5. ABILIFY [Concomitant]
  6. HALDOL [Concomitant]
  7. DEPAKOTE [Concomitant]
     Dosage: 500 MG 2 AT  NIGHT
     Dates: start: 20050601
  8. ZYPREXA [Concomitant]
     Dates: start: 20050601
  9. RISPERDAL [Concomitant]
     Dates: start: 20001116

REACTIONS (2)
  - DIABETES MELLITUS [None]
  - PANCREATITIS [None]
